FAERS Safety Report 4411772-4 (Version None)
Quarter: 2004Q2

REPORT INFORMATION
  Report Type: 
  Country: None (occurrence: None)
  Receive Date: 20040630
  Receipt Date: 20040330
  Transmission Date: 20050107
  Serious: No
  Sender: FDA-Public Use
  Company Number: 04P-163-0255388-00

PATIENT
  Age: 56 Year
  Sex: Female
  Weight: 67.1324 kg

DRUGS (10)
  1. HUMIRA [Suspect]
     Indication: RHEUMATOID ARTHRITIS
     Dosage: 40 MG, 1 IN 2 WK, SUBCUTANEOUS
     Route: 058
     Dates: start: 20040101
  2. SULFASALAZINE [Concomitant]
  3. REMIFENIN [Concomitant]
  4. SALIGEN [Concomitant]
  5. FOLIC ACID [Concomitant]
  6. VOLTAREN [Concomitant]
  7. VALSARTAN [Concomitant]
  8. GLUCOSAMINE [Concomitant]
  9. METHOTREXATE [Concomitant]
  10. LEVOTHYROXINE SODIUM [Concomitant]

REACTIONS (1)
  - SENSATION OF FOREIGN BODY [None]
